FAERS Safety Report 22232995 (Version 1)
Quarter: 2023Q2

REPORT INFORMATION
  Report Type: Spontaneous
  Country: None (occurrence: DK)
  Receive Date: 20230420
  Receipt Date: 20230420
  Transmission Date: 20230722
  Serious: Yes (Other)
  Sender: FDA-Public Use
  Company Number: DK-Therakind Limited-2140589

PATIENT
  Age: 64 Year
  Sex: Male

DRUGS (13)
  1. METHOTREXATE [Suspect]
     Active Substance: METHOTREXATE
     Indication: Diffuse large B-cell lymphoma
     Route: 065
     Dates: start: 20220630, end: 20220810
  2. PREDNISONE [Suspect]
     Active Substance: PREDNISONE
  3. RITUXIMAB [Suspect]
     Active Substance: RITUXIMAB
  4. OBINUTUZUMAB [Suspect]
     Active Substance: OBINUTUZUMAB
  5. CARBOPLATIN [Suspect]
     Active Substance: CARBOPLATIN
  6. ETOPOSIDE PHOSPHATE [Suspect]
     Active Substance: ETOPOSIDE PHOSPHATE
  7. BENDAMUSTINE [Suspect]
     Active Substance: BENDAMUSTINE
  8. POLATUZUMAB VEDOTIN [Suspect]
     Active Substance: POLATUZUMAB VEDOTIN
  9. DOXORUBICIN HYDROCHLORIDE [Suspect]
     Active Substance: DOXORUBICIN HYDROCHLORIDE
  10. VINCRISTINE SULFATE [Suspect]
     Active Substance: VINCRISTINE SULFATE
  11. IFOSFAMIDE [Suspect]
     Active Substance: IFOSFAMIDE
  12. GEMCITABINE [Suspect]
     Active Substance: GEMCITABINE
  13. CYCLOPHOSPHAMIDE [Suspect]
     Active Substance: CYCLOPHOSPHAMIDE

REACTIONS (3)
  - Off label use [Unknown]
  - Lymphoma transformation [Unknown]
  - Disease progression [Unknown]
